FAERS Safety Report 22147158 (Version 1)
Quarter: 2023Q1

REPORT INFORMATION
  Report Type: Report from Study
  Country: US (occurrence: US)
  Receive Date: 20230328
  Receipt Date: 20230328
  Transmission Date: 20230418
  Serious: Yes (Hospitalization, Other)
  Sender: FDA-Public Use
  Company Number: US-ABBVIE-4703099

PATIENT
  Age: 70 Year
  Sex: Male

DRUGS (1)
  1. HUMIRA [Suspect]
     Active Substance: ADALIMUMAB
     Indication: Product used for unknown indication
     Dosage: FREQUENCY TEXT: UNKNOWN, START DATE TEXT: UNKNOWN
     Route: 058

REACTIONS (10)
  - Chills [Recovering/Resolving]
  - Localised infection [Recovering/Resolving]
  - Purulence [Unknown]
  - Muscular weakness [Unknown]
  - Mobility decreased [Recovering/Resolving]
  - Haematuria [Unknown]
  - Malaise [Unknown]
  - Dysstasia [Unknown]
  - Pyrexia [Unknown]
  - Localised infection [Unknown]

NARRATIVE: CASE EVENT DATE: 20230201
